FAERS Safety Report 10077579 (Version 2)
Quarter: 2014Q2

REPORT INFORMATION
  Report Type: Spontaneous
  Country: US (occurrence: US)
  Receive Date: 20140414
  Receipt Date: 20140414
  Transmission Date: 20141212
  Serious: No
  Sender: FDA-Public Use
  Company Number: US-BANPHARM-20131876

PATIENT
  Age: 62 Year
  Sex: Female
  Weight: 72.57 kg

DRUGS (4)
  1. ALEVE LIQUID GELS 220 MG [Suspect]
     Indication: MUSCLE STRAIN
     Dosage: 1 DF, BID,
     Route: 048
     Dates: start: 20131001, end: 20131027
  2. ALEVE CAPLETS [Suspect]
     Dosage: 1 DF, BID,
     Dates: start: 20131001, end: 20131027
  3. BLOOD PRESSURE MEDICINE [Concomitant]
  4. WATER PILL [Concomitant]

REACTIONS (4)
  - Contusion [Recovered/Resolved]
  - Pruritus [Not Recovered/Not Resolved]
  - Rash [Not Recovered/Not Resolved]
  - Incorrect drug administration duration [Unknown]
